FAERS Safety Report 13055368 (Version 2)
Quarter: 2017Q1

REPORT INFORMATION
  Report Type: Not Available
  Country: IT (occurrence: IT)
  Receive Date: 20161222
  Receipt Date: 20170103
  Transmission Date: 20170428
  Serious: Yes (Hospitalization)
  Sender: FDA-Public Use
  Company Number: IT-MUNDIPHARMA DS AND PHARMACOVIGILANCE-GBR-2016-0042485

PATIENT
  Age: 89 Year
  Sex: Female
  Weight: 53 kg

DRUGS (3)
  1. BLOPRESS [Concomitant]
     Active Substance: CANDESARTAN CILEXETIL
     Dosage: STRENGHT 15MG
     Route: 048
  2. TARGIN [Suspect]
     Active Substance: NALOXONE HYDROCHLORIDE\OXYCODONE HYDROCHLORIDE
     Indication: ARTHRALGIA
     Dosage: 2 POSOLOGIC UNITS/DAY (STRENGHT 5 MG/2.5 MG)
     Route: 048
     Dates: start: 20161129, end: 20161204
  3. KOLIBRI [Concomitant]
     Active Substance: ACETAMINOPHEN\TRAMADOL HYDROCHLORIDE
     Dosage: STRENGHT 37.5 MG/325 MG
     Route: 048

REACTIONS (1)
  - Erythema [Recovered/Resolved]

NARRATIVE: CASE EVENT DATE: 20161202
